FAERS Safety Report 9633806 (Version 1)
Quarter: 2013Q4

REPORT INFORMATION
  Report Type: Spontaneous
  Country: IN (occurrence: None)
  Receive Date: 20131017
  Receipt Date: 20131017
  Transmission Date: 20140711
  Serious: Yes (Other)
  Sender: FDA-Public Use
  Company Number: 2013P1020083

PATIENT
  Age: 18 Year
  Sex: Female
  Weight: 58 kg

DRUGS (3)
  1. DICYCLOMINE [Suspect]
     Indication: ENTEROCOLITIS INFECTIOUS
     Dosage: IM ?20-40 MG; PRN; IM
     Route: 030
  2. PARACETAMOL [Concomitant]
  3. NORFLOXACIN [Concomitant]

REACTIONS (20)
  - Asthenia [None]
  - Palpitations [None]
  - Vision blurred [None]
  - Dry eye [None]
  - Constipation [None]
  - Anxiety [None]
  - Stereotypy [None]
  - Agitation [None]
  - Euphoric mood [None]
  - Hallucination [None]
  - Fatigue [None]
  - Amnesia [None]
  - Disorientation [None]
  - Confusional state [None]
  - Dysarthria [None]
  - Ataxia [None]
  - Mydriasis [None]
  - Erythema [None]
  - Sinus tachycardia [None]
  - Toxicity to various agents [None]
